FAERS Safety Report 7265380-0 (Version None)
Quarter: 2011Q1

REPORT INFORMATION
  Report Type: 
  Country: None (occurrence: None)
  Receive Date: 20110131
  Receipt Date: 20110124
  Transmission Date: 20110831
  Serious: Yes (Death)
  Sender: FDA-Public Use
  Company Number: US-SANOFI-AVENTIS-2011SA005068

PATIENT
  Age: 87 Year
  Sex: Male

DRUGS (6)
  1. COUMADIN [Concomitant]
  2. CARDIZEM [Concomitant]
  3. PLAVIX [Suspect]
     Route: 048
     Dates: end: 20110101
  4. ASPIRIN [Concomitant]
  5. FUROSEMIDE [Concomitant]
  6. DIGOXIN [Concomitant]

REACTIONS (1)
  - DEATH [None]
